FAERS Safety Report 17433647 (Version 4)
Quarter: 2020Q2

REPORT INFORMATION
  Report Type: Spontaneous
  Country: US (occurrence: US)
  Receive Date: 20200219
  Receipt Date: 20200407
  Transmission Date: 20200713
  Serious: Yes (Life-Threatening)
  Sender: FDA-Public Use
  Company Number: US-GLAXOSMITHKLINE-US2020AMR025638

PATIENT
  Age: 55 Year
  Sex: Male
  Weight: 79.3 kg

DRUGS (1)
  1. NUCALA [Suspect]
     Active Substance: MEPOLIZUMAB
     Indication: ASTHMA
     Dosage: UNK
     Route: 065

REACTIONS (5)
  - Coronary artery disease [Recovered/Resolved]
  - Ill-defined disorder [Unknown]
  - Stent placement [Recovered/Resolved]
  - Cardiac operation [Recovered/Resolved]
  - Intentional dose omission [Recovered/Resolved]

NARRATIVE: CASE EVENT DATE: 202001
